FAERS Safety Report 6999201-8 (Version None)
Quarter: 2010Q3

REPORT INFORMATION
  Report Type: 
  Country: None (occurrence: None)
  Receive Date: 20100920
  Receipt Date: 20100309
  Transmission Date: 20110219
  Serious: No
  Sender: FDA-Public Use
  Company Number: US-ASTRAZENECA-2009SE15650

PATIENT
  Age: 8750 Day
  Sex: Female
  Weight: 106.6 kg

DRUGS (6)
  1. SEROQUEL [Suspect]
     Indication: BIPOLAR DISORDER
     Route: 048
     Dates: start: 20040801
  2. SEROQUEL [Suspect]
     Indication: POST-TRAUMATIC STRESS DISORDER
     Route: 048
     Dates: start: 20040801
  3. ABILIFY [Concomitant]
     Dates: start: 20080101
  4. GEODON [Concomitant]
  5. RISPERDAL [Concomitant]
  6. ZYPREXA/ SYMBYX [Concomitant]

REACTIONS (7)
  - ABDOMINAL PAIN [None]
  - CONSTIPATION [None]
  - NAUSEA [None]
  - OBESITY [None]
  - PYREXIA [None]
  - TYPE 2 DIABETES MELLITUS [None]
  - VOMITING [None]
